FAERS Safety Report 16771156 (Version 1)
Quarter: 2019Q3

REPORT INFORMATION
  Report Type: Spontaneous
  Country: US (occurrence: US)
  Receive Date: 20190904
  Receipt Date: 20190904
  Transmission Date: 20191005
  Serious: No
  Sender: FDA-Public Use
  Company Number: US-MYLANLABS-2019M1078984

PATIENT
  Sex: Female
  Weight: 58 kg

DRUGS (1)
  1. LEVOTHYROXINE SODIUM TABLETS, USP [Suspect]
     Active Substance: LEVOTHYROXINE SODIUM
     Indication: HYPOTHYROIDISM
     Dosage: UNK
     Dates: end: 2019

REACTIONS (5)
  - Tinnitus [Recovered/Resolved]
  - Skin disorder [Recovered/Resolved]
  - Throat tightness [Recovered/Resolved]
  - Muscle disorder [Recovered/Resolved]
  - Sinus disorder [Recovered/Resolved]
